FAERS Safety Report 9620201 (Version 2)
Quarter: 2013Q4

REPORT INFORMATION
  Report Type: Spontaneous
  Country: PL (occurrence: PL)
  Receive Date: 20131014
  Receipt Date: 20131016
  Transmission Date: 20140711
  Serious: Yes (Hospitalization)
  Sender: FDA-Public Use
  Company Number: PHHY2013PL112269

PATIENT
  Age: 45 Year
  Sex: Male

DRUGS (2)
  1. TEGRETOL [Suspect]
     Indication: EPILEPSY
     Dosage: 400 MG, BID
  2. TEGRETOL [Suspect]
     Dosage: 800 MG, BID

REACTIONS (14)
  - Mental disorder [Not Recovered/Not Resolved]
  - Presyncope [Unknown]
  - Altered state of consciousness [Unknown]
  - Carotid sinus syndrome [Unknown]
  - Loss of consciousness [Unknown]
  - Acute coronary syndrome [Unknown]
  - Sick sinus syndrome [Unknown]
  - Suicide attempt [Unknown]
  - Depressive symptom [Unknown]
  - Somatisation disorder [Unknown]
  - Syncope [Unknown]
  - Psychogenic seizure [Unknown]
  - Drug ineffective [Unknown]
  - Arrhythmia [Unknown]
